FAERS Safety Report 6550850-0 (Version None)
Quarter: 2010Q1

REPORT INFORMATION
  Report Type: 
  Country: None (occurrence: None)
  Receive Date: 20100122
  Receipt Date: 20100122
  Transmission Date: 20100710
  Serious: Yes (Hospitalization)
  Sender: FDA-Public Use
  Company Number: None

PATIENT
  Age: 86 Year
  Sex: Male
  Weight: 62.6 kg

DRUGS (1)
  1. WARFARIN SODIUM [Suspect]
     Indication: CARDIOMYOPATHY
     Dosage: 3 MG EVERY DAY PO
     Route: 048
     Dates: start: 20091120, end: 20100115

REACTIONS (2)
  - CONTUSION [None]
  - INTERNATIONAL NORMALISED RATIO DECREASED [None]
